FAERS Safety Report 14656286 (Version 1)
Quarter: 2018Q1

REPORT INFORMATION
  Report Type: Report from Study
  Country: ES (occurrence: ES)
  Receive Date: 20180319
  Receipt Date: 20180319
  Transmission Date: 20180509
  Serious: Yes (Hospitalization)
  Sender: FDA-Public Use
  Company Number: ES-PFIZER INC-2018106591

PATIENT
  Age: 64 Year
  Sex: Male

DRUGS (10)
  1. IRINOTECAN HCL [Suspect]
     Active Substance: IRINOTECAN HYDROCHLORIDE
     Indication: COLORECTAL CANCER METASTATIC
     Dosage: 350 MG, CYCLIC
     Route: 041
     Dates: start: 20141125
  2. 5-FU [Suspect]
     Active Substance: FLUOROURACIL
     Dosage: 4680 MG, CYCLIC
     Route: 041
     Dates: start: 20141125, end: 20141125
  3. 5-FU [Suspect]
     Active Substance: FLUOROURACIL
     Indication: COLORECTAL CANCER METASTATIC
     Dosage: 780 MG, CYCLIC
     Route: 040
     Dates: start: 20141125, end: 20141125
  4. AFLIBERCEPT [Suspect]
     Active Substance: AFLIBERCEPT
     Dosage: 340 MG, CYCLIC
     Route: 041
     Dates: start: 20150113
  5. LORAZEPAM. [Concomitant]
     Active Substance: LORAZEPAM
     Dosage: UNK
     Route: 065
     Dates: start: 20150131
  6. LEUCOVORIN. [Suspect]
     Active Substance: LEUCOVORIN
     Indication: COLORECTAL CANCER METASTATIC
     Dosage: 780 MG, CYCLIC
     Route: 041
     Dates: start: 20141125
  7. OMEPRAZOLE. [Concomitant]
     Active Substance: OMEPRAZOLE
     Dosage: UNK
     Route: 065
     Dates: start: 20150131
  8. 5-FU [Suspect]
     Active Substance: FLUOROURACIL
     Dosage: 3740 MG, CYCLIC
     Route: 041
     Dates: start: 20150113
  9. AFLIBERCEPT [Suspect]
     Active Substance: AFLIBERCEPT
     Indication: COLORECTAL CANCER METASTATIC
     Dosage: 340 MG, CYCLIC
     Route: 041
     Dates: start: 20141125, end: 20141125
  10. LIDOCAINE. [Concomitant]
     Active Substance: LIDOCAINE
     Dosage: UNK
     Route: 065
     Dates: start: 20150131

REACTIONS (4)
  - Thrombocytopenia [Recovered/Resolved]
  - Urinary tract infection [Recovered/Resolved]
  - Neutropenia [Recovered/Resolved]
  - Epistaxis [Recovered/Resolved]

NARRATIVE: CASE EVENT DATE: 20150125
